FAERS Safety Report 16153115 (Version 3)
Quarter: 2019Q3

REPORT INFORMATION
  Report Type: Spontaneous
  Country: US (occurrence: US)
  Receive Date: 20190403
  Receipt Date: 20190926
  Transmission Date: 20191004
  Serious: Yes (Other)
  Sender: FDA-Public Use
  Company Number: US-VERTEX PHARMACEUTICALS-2019-002872

PATIENT
  Sex: Female

DRUGS (1)
  1. ORKAMBI [Suspect]
     Active Substance: IVACAFTOR\LUMACAFTOR
     Indication: CYSTIC FIBROSIS
     Dosage: 100/125 MG GRANULES (1 PACKET), BID
     Route: 048

REACTIONS (3)
  - Infection [Not Recovered/Not Resolved]
  - Dacryostenosis acquired [Unknown]
  - Complication associated with device [Unknown]

NARRATIVE: CASE EVENT DATE: 2019
